FAERS Safety Report 9035146 (Version 1)
Quarter: 2013Q1

REPORT INFORMATION
  Report Type: Report from Study
  Country: US (occurrence: US)
  Receive Date: 20130129
  Receipt Date: 20130129
  Transmission Date: 20140127
  Serious: No
  Sender: FDA-Public Use
  Company Number: US-ABBOTT-12P-163-0898052-00

PATIENT
  Age: 64 Year
  Sex: Female

DRUGS (7)
  1. HUMIRA 40 MG/0.8 ML PEN [Suspect]
     Indication: PSORIASIS
     Dates: start: 201003
  2. VITAMIN D [Concomitant]
     Indication: PRODUCT USED FOR UNKNOWN INDICATION
     Dosage: WEEKLY
  3. LISINOPRIL [Concomitant]
     Indication: HYPERTENSION
  4. MULTIVITAMINS [Concomitant]
     Indication: PRODUCT USED FOR UNKNOWN INDICATION
     Dosage: DAILY
  5. LORATADINE OTC [Concomitant]
     Indication: HYPERSENSITIVITY
  6. METHOTREXATE [Concomitant]
     Indication: PRODUCT USED FOR UNKNOWN INDICATION
     Dosage: THREE PILLS WEEKLY
  7. METHOTREXATE [Concomitant]
     Dosage: FOUR PILLS WEEKLY

REACTIONS (3)
  - Skin disorder [Recovering/Resolving]
  - Drug dose omission [Unknown]
  - Blood cholesterol increased [Unknown]
